FAERS Safety Report 7999514-7 (Version None)
Quarter: 2011Q4

REPORT INFORMATION
  Report Type: 
  Country: None (occurrence: None)
  Receive Date: 20111221
  Receipt Date: 20111216
  Transmission Date: 20120403
  Serious: No
  Sender: FDA-Public Use
  Company Number: US-PFIZER INC-2011306809

PATIENT
  Sex: Female
  Weight: 54.422 kg

DRUGS (3)
  1. SKELAXIN [Suspect]
     Indication: MUSCLE RELAXANT THERAPY
     Dosage: 800 MG, UNK
  2. CELEBREX [Suspect]
     Indication: ARTHRITIS
     Dosage: UNK
  3. CELEBREX [Suspect]
     Dosage: 200 MG, UNK
     Dates: start: 20110101

REACTIONS (3)
  - FUNCTIONAL GASTROINTESTINAL DISORDER [None]
  - DIARRHOEA [None]
  - ROAD TRAFFIC ACCIDENT [None]
